FAERS Safety Report 5813988-9 (Version None)
Quarter: 2008Q3

REPORT INFORMATION
  Report Type: 
  Country: None (occurrence: None)
  Receive Date: 20080715
  Receipt Date: 20080702
  Transmission Date: 20090109
  Serious: Yes (Death)
  Sender: FDA-Public Use
  Company Number: 14694

PATIENT
  Age: 73 Year
  Sex: Male

DRUGS (5)
  1. MORPHINE SULFATE [Suspect]
     Indication: CANCER PAIN
     Dosage: ONE 30 MG TABLET ORALLY
     Route: 048
     Dates: start: 20080101
  2. UNSPECIFIED HYPERTENSION MEDICATION(S) [Concomitant]
  3. UNSPECIFIED STOMACH MEDICATION(S) [Concomitant]
  4. COZAAR [Concomitant]
  5. NSPECIFIED ^WATER PILLS^ [Concomitant]

REACTIONS (2)
  - DEATH [None]
  - PHARMACEUTICAL PRODUCT COMPLAINT [None]
